FAERS Safety Report 8171050-7 (Version None)
Quarter: 2012Q1

REPORT INFORMATION
  Report Type: 
  Country: None (occurrence: None)
  Receive Date: 20120228
  Receipt Date: 20120220
  Transmission Date: 20120608
  Serious: Yes (Death)
  Sender: FDA-Public Use
  Company Number: PHHY2012RU013039

PATIENT

DRUGS (3)
  1. NEORAL [Suspect]
     Dosage: 25 TO 250 MG/DAY
  2. NEORAL [Suspect]
     Indication: RENAL TRANSPLANT
     Dosage: 25 TO 250 MG/DAY
  3. ORGASPORIN [Concomitant]
     Dosage: UNK UKN, UNK

REACTIONS (1)
  - URINARY TRACT INFECTION [None]
